FAERS Safety Report 10338968 (Version 1)
Quarter: 2014Q3

REPORT INFORMATION
  Report Type: Spontaneous
  Country: GB (occurrence: None)
  Receive Date: 20140721
  Receipt Date: 20140721
  Transmission Date: 20150326
  Serious: Yes (Life-Threatening, Hospitalization)
  Sender: FDA-Public Use
  Company Number: 2442853

PATIENT
  Age: 42 Year
  Sex: Female
  Weight: 94 kg

DRUGS (1)
  1. PROPOFOL. [Suspect]
     Active Substance: PROPOFOL
     Indication: SEDATIVE THERAPY
     Dosage: INTRAVENOUS (NOT OTHERWISE SPECIFIED)?
     Route: 042
     Dates: start: 20140515, end: 20140515

REACTIONS (8)
  - Stereotypy [None]
  - Convulsion [None]
  - Paralysis [None]
  - Dyspnoea [None]
  - Heart rate increased [None]
  - Paraesthesia [None]
  - Rash [None]
  - Erythema [None]

NARRATIVE: CASE EVENT DATE: 20140515
